FAERS Safety Report 5980294-1 (Version None)
Quarter: 2008Q4

REPORT INFORMATION
  Report Type: 
  Country: None (occurrence: None)
  Receive Date: 20081205
  Receipt Date: 20081201
  Transmission Date: 20090506
  Serious: Yes (Hospitalization, Other)
  Sender: FDA-Public Use
  Company Number: PHBS2008BE06571

PATIENT
  Sex: Female

DRUGS (1)
  1. DICLOFENAC SODIUM [Suspect]
     Indication: ANALGESIC THERAPY
     Dosage: 2-3 TABS, DAILY
     Route: 048

REACTIONS (10)
  - DIABETIC NEPHROPATHY [None]
  - ECHOGRAPHY ABNORMAL [None]
  - HYPERTENSION [None]
  - NEPHRECTOMY [None]
  - NEPHROLITHIASIS [None]
  - OBESITY [None]
  - PROTEINURIA [None]
  - PYONEPHROSIS [None]
  - RENAL FAILURE CHRONIC [None]
  - RENAL PAPILLARY NECROSIS [None]
